FAERS Safety Report 15302505 (Version 1)
Quarter: 2018Q4

REPORT INFORMATION
  Report Type: Spontaneous
  Country: FR (occurrence: FR)
  Receive Date: 20180821
  Receipt Date: 20180821
  Transmission Date: 20190204
  Serious: Yes (Other)
  Sender: FDA-Public Use
  Company Number: FR-TEVA-2018-FR-944502

PATIENT
  Age: 76 Year
  Sex: Male
  Weight: 35 kg

DRUGS (2)
  1. SOLIAN 50 MG, COMPRIM? [Suspect]
     Active Substance: AMISULPRIDE
     Indication: DEPRESSION
     Route: 048
     Dates: start: 201805
  2. DULOXETINE (CHLORHYDRATE DE) [Suspect]
     Active Substance: DULOXETINE
     Indication: DEPRESSION
     Route: 048
     Dates: start: 201805

REACTIONS (3)
  - Weight decreased [Unknown]
  - Condition aggravated [Unknown]
  - Decreased appetite [Unknown]

NARRATIVE: CASE EVENT DATE: 201807
